FAERS Safety Report 4807309-8 (Version None)
Quarter: 2005Q4

REPORT INFORMATION
  Report Type: 
  Country: None (occurrence: None)
  Receive Date: 20051020
  Receipt Date: 20051007
  Transmission Date: 20060501
  Serious: Yes (Hospitalization, Other)
  Sender: FDA-Public Use
  Company Number: 2005BI018575

PATIENT
  Age: 39 Year
  Sex: Male

DRUGS (2)
  1. AVONEX (INTERFERON BETA) [Suspect]
     Indication: MULTIPLE SCLEROSIS
     Dosage: 30 UG; QW; IM
     Route: 030
     Dates: start: 20050501, end: 20051001
  2. NSAIDS [Concomitant]

REACTIONS (5)
  - ELECTROCARDIOGRAM ABNORMAL [None]
  - INFECTION [None]
  - LIVER FUNCTION TEST ABNORMAL [None]
  - MYOCARDITIS [None]
  - ULTRASOUND SCAN ABNORMAL [None]
